FAERS Safety Report 21998517 (Version 1)
Quarter: 2023Q1

REPORT INFORMATION
  Report Type: Spontaneous
  Country: PL (occurrence: PL)
  Receive Date: 20230216
  Receipt Date: 20230216
  Transmission Date: 20230417
  Serious: Yes (Other)
  Sender: FDA-Public Use
  Company Number: PL-STRIDES ARCOLAB LIMITED-2023SP002151

PATIENT
  Age: 7 Year
  Sex: Female

DRUGS (28)
  1. DOXORUBICIN [Suspect]
     Active Substance: DOXORUBICIN
     Indication: Primary mediastinal large B-cell lymphoma
     Dosage: 60 MILLIGRAM/SQ. METER, PER DAY, ON DAY 1 IN 1-HOUR INFUSION (2 CYCLES OF R-COPADM)
     Route: 065
  2. METHOTREXATE [Suspect]
     Active Substance: METHOTREXATE
     Indication: Primary mediastinal large B-cell lymphoma
     Dosage: UNK, (1 CYCLE OF PRE-PHASE COP)
     Route: 065
  3. METHOTREXATE [Suspect]
     Active Substance: METHOTREXATE
     Dosage: 1 GRAM PER SQUARE METRE (1 G/M2 IN 500 ML/M2 IN DEXTROSE 5% ON DAY 1), INFUSION, (2 CYCLES OF R-COPA
     Route: 042
  4. METHOTREXATE [Suspect]
     Active Substance: METHOTREXATE
     Dosage: 15 MILLIGRAM, INJECTION (2 CYCLES OF R-COPADM)
     Route: 037
  5. METHOTREXATE [Suspect]
     Active Substance: METHOTREXATE
     Dosage: UNK, CYCLICAL (R-CYM)
     Route: 065
  6. METHOTREXATE [Suspect]
     Active Substance: METHOTREXATE
     Dosage: UNK, CYCLICAL (R-CYM)
     Route: 065
  7. METHOTREXATE [Suspect]
     Active Substance: METHOTREXATE
     Dosage: UNK, CYCLICAL, 2 CYCLES OF R-CYM
     Route: 065
  8. PREDNISOLONE [Suspect]
     Active Substance: PREDNISOLONE
     Indication: Primary mediastinal large B-cell lymphoma
     Dosage: UNK, CYCLICAL, 1 CYCLE OF PRE-PHASE COP
     Route: 065
  9. PREDNISOLONE [Suspect]
     Active Substance: PREDNISOLONE
     Dosage: 60 MILLIGRAM/SQ. METER, BID, ON DAYS 1-5 ( 2 CYCLES OF R-COPADM)
     Route: 048
  10. RITUXIMAB [Suspect]
     Active Substance: RITUXIMAB
     Indication: Primary mediastinal large B-cell lymphoma
     Dosage: 375 MILLIGRAM/SQ. METER, CYCLICAL, ON DAY 1 (2 CYCLES OF R-COPADM)
     Route: 065
  11. RITUXIMAB [Suspect]
     Active Substance: RITUXIMAB
     Dosage: UNK, CYCLICAL (1 CYCLE OF R-CYM)
     Route: 065
  12. RITUXIMAB [Suspect]
     Active Substance: RITUXIMAB
     Dosage: UNK, CYCLICAL (2 CYCLE OF R-CYM)
     Route: 065
  13. VINCRISTINE [Suspect]
     Active Substance: VINCRISTINE
     Indication: Primary mediastinal large B-cell lymphoma
     Dosage: UNK, (WITH 1 CYCLE OF PRE-PHASE COP
     Route: 065
  14. VINCRISTINE [Suspect]
     Active Substance: VINCRISTINE
     Dosage: 2 MILLIGRAM/SQ. METER, (2 CYCLES OF R-COPADM), CYCLICAL
     Route: 040
  15. LEUCOVORIN [Suspect]
     Active Substance: LEUCOVORIN
     Indication: Primary mediastinal large B-cell lymphoma
     Dosage: 15 MILLIGRAM/SQ. METER, QID, EVERY 1 HOUR UNTIL METHOTREXATE LEVEL IS BELOW 0.15 MMOL/L (2 CYCLES OF
     Route: 048
  16. LEUCOVORIN [Suspect]
     Active Substance: LEUCOVORIN
     Dosage: UNK, 1 CYCLE OF R-CYM
     Route: 065
  17. LEUCOVORIN [Suspect]
     Active Substance: LEUCOVORIN
     Dosage: UNK, 2 CYCLES OF R-CYM
     Route: 065
  18. CYCLOPHOSPHAMIDE [Suspect]
     Active Substance: CYCLOPHOSPHAMIDE
     Indication: Primary mediastinal large B-cell lymphoma
     Dosage: UNK, (1 CYCLE OF PRE-PHASE COP)
     Route: 065
  19. CYCLOPHOSPHAMIDE [Suspect]
     Active Substance: CYCLOPHOSPHAMIDE
     Dosage: 200 MILLIGRAM/SQ. METER, BID, 200 (1ST R-COPADM)/250 (2ND R-COPADM) MG/M2/DOSE EVERY 12 HOURS AS AN
     Route: 065
  20. CYCLOPHOSPHAMIDE [Suspect]
     Active Substance: CYCLOPHOSPHAMIDE
     Dosage: 200 MILLIGRAM/SQ. METER, BID, 200 (1ST R-COPADM)/250 (2ND R-COPADM) MG/M2/DOSE EVERY 12 HOURS AS AN
     Route: 065
  21. HYDROCORTISONE [Suspect]
     Active Substance: HYDROCORTISONE
     Indication: Primary mediastinal large B-cell lymphoma
     Dosage: UNK, (1 CYCLE OF PRE-PHASE COP)
     Route: 065
  22. HYDROCORTISONE [Suspect]
     Active Substance: HYDROCORTISONE
     Dosage: 15 MILLIGRAM, CYCLICAL, (2 CYCLES OF R-COPADM) INJECTION
     Route: 037
  23. HYDROCORTISONE [Suspect]
     Active Substance: HYDROCORTISONE
     Dosage: UNK,(1 CYCLE OF R-CYM)
     Route: 065
  24. HYDROCORTISONE [Suspect]
     Active Substance: HYDROCORTISONE
     Dosage: UNK, (2 CYCLES OF R-CYM)
     Route: 065
  25. DEXTROSE [Concomitant]
     Active Substance: DEXTROSE
     Indication: Vehicle solution use
     Dosage: 500 MILLILITRE PER SQUARE METRE
     Route: 042
  26. AZITHROMYCIN [Concomitant]
     Active Substance: AZITHROMYCIN
     Indication: Antibiotic prophylaxis
     Dosage: UNK
     Route: 065
  27. CYTARABINE [Concomitant]
     Active Substance: CYTARABINE
     Indication: Primary mediastinal large B-cell lymphoma
     Dosage: UNK, 1 CYCLE OF R-CYM, CYCLICAL
     Route: 065
  28. CYTARABINE [Concomitant]
     Active Substance: CYTARABINE
     Dosage: UNK, 2 CYCLES OF R-CYM, CYCLICAL
     Route: 065

REACTIONS (9)
  - Hypertension [Unknown]
  - Leukopenia [Unknown]
  - Febrile neutropenia [Unknown]
  - Stomatitis [Unknown]
  - Condition aggravated [Unknown]
  - Thrombocytopenia [Unknown]
  - Anaemia [Unknown]
  - Urinary tract infection [Unknown]
  - Therapy non-responder [Unknown]
